FAERS Safety Report 15272690 (Version 2)
Quarter: 2018Q4

REPORT INFORMATION
  Report Type: Spontaneous
  Country: FR (occurrence: FR)
  Receive Date: 20180813
  Receipt Date: 20181016
  Transmission Date: 20190204
  Serious: Yes (Other)
  Sender: FDA-Public Use
  Company Number: FR-BAYER-2018-146886

PATIENT
  Age: 51 Year
  Sex: Female
  Weight: 97 kg

DRUGS (2)
  1. BILTRICIDE [Suspect]
     Active Substance: PRAZIQUANTEL
     Indication: PAIN
     Dosage: 1 DF, UNK
     Route: 048
     Dates: start: 20171225, end: 20180618
  2. ZENTEL [Suspect]
     Active Substance: ALBENDAZOLE
     Indication: PAIN
     Dosage: 1 DF, QD
     Route: 048
     Dates: start: 20171225, end: 20180618

REACTIONS (1)
  - Hepatitis [Recovering/Resolving]

NARRATIVE: CASE EVENT DATE: 20180514
